FAERS Safety Report 8928266 (Version 1)
Quarter: 2012Q4

REPORT INFORMATION
  Report Type: 
  Country: DE (occurrence: DE)
  Receive Date: 20121128
  Receipt Date: 20121128
  Transmission Date: 20130627
  Serious: Yes (Death, Life-Threatening, Hospitalization, Other)
  Sender: FDA-Public Use
  Company Number: PHHY2012DE108237

PATIENT
  Age: 30 Year
  Sex: Male

DRUGS (9)
  1. CLOZAPINE [Suspect]
     Dosage: 125 mg, UNK
     Dates: start: 20120426
  2. CLOZAPINE [Suspect]
     Dosage: 300 mg, UNK
     Dates: start: 20120616
  3. METFORMIN [Suspect]
     Indication: OFF LABEL USE
     Dosage: 2000 mg, UNK
  4. AMISULPRID [Concomitant]
     Dosage: 200 mg, UNK
     Dates: start: 20120206
  5. AMISULPRID [Concomitant]
     Dosage: 600 mg, UNK
     Dates: start: 20120311
  6. AMISULPRID [Concomitant]
     Dosage: 600 mg, UNK
     Dates: start: 20120404
  7. AMISULPRID [Concomitant]
     Dosage: 600 mg, UNK
     Dates: start: 20120426
  8. OLANZAPINE [Concomitant]
     Dosage: 20 mg, UNK
     Dates: start: 20120206
  9. OLANZAPINE [Concomitant]
     Dosage: 20 mg, UNK
     Dates: start: 20120404

REACTIONS (11)
  - Cardiac arrest [Fatal]
  - Brain injury [Unknown]
  - Blood bicarbonate decreased [Unknown]
  - Base excess decreased [Unknown]
  - Hypothermia [Unknown]
  - Confusional state [Unknown]
  - Syncope [Unknown]
  - Electrocardiogram ST segment elevation [Unknown]
  - Sinus tachycardia [Unknown]
  - Heart rate increased [Unknown]
  - Weight increased [Unknown]
